FAERS Safety Report 7919449-5 (Version None)
Quarter: 2011Q4

REPORT INFORMATION
  Report Type: 
  Country: None (occurrence: None)
  Receive Date: 20111115
  Receipt Date: 20111028
  Transmission Date: 20120403
  Serious: Yes (Hospitalization)
  Sender: FDA-Public Use
  Company Number: CIO11020110

PATIENT
  Sex: Male

DRUGS (1)
  1. NYQUIL COLD + FLU ALCOHOL 10% NIGHTTIME RELIEF, FLAVOR UNKNOWN(ETHANOL [Suspect]
     Dosage: UNKNOWN, ORAL
     Route: 048

REACTIONS (1)
  - NEUROLOGICAL SYMPTOM [None]
